FAERS Safety Report 5046849-6 (Version None)
Quarter: 2006Q3

REPORT INFORMATION
  Report Type: 
  Country: None (occurrence: None)
  Receive Date: 20060705
  Receipt Date: 20060705
  Transmission Date: 20061208
  Serious: Yes (Other)
  Sender: FDA-Public Use
  Company Number: None

PATIENT
  Age: 26 Year
  Sex: Female
  Weight: 97.5234 kg

DRUGS (2)
  1. CRYSELLE [Suspect]
     Indication: MENSTRUATION IRREGULAR
     Dosage: ONE TABLET ONCE DAILY PO
     Route: 048
     Dates: start: 20060201, end: 20060630
  2. CRYSELLE [Suspect]
     Indication: POLYCYSTIC OVARIES
     Dosage: ONE TABLET ONCE DAILY PO
     Route: 048
     Dates: start: 20060201, end: 20060630

REACTIONS (4)
  - DRUG INEFFECTIVE [None]
  - MENOMETRORRHAGIA [None]
  - MENSTRUATION IRREGULAR [None]
  - THERAPEUTIC RESPONSE UNEXPECTED WITH DRUG SUBSTITUTION [None]
